FAERS Safety Report 25220615 (Version 3)
Quarter: 2025Q2

REPORT INFORMATION
  Report Type: Report from Study
  Country: US (occurrence: US)
  Receive Date: 20250421
  Receipt Date: 20250506
  Transmission Date: 20250716
  Serious: Yes (Other)
  Sender: PFIZER
  Company Number: US-PFIZER INC-202500077159

PATIENT
  Age: 59 Year
  Sex: Male

DRUGS (11)
  1. TUKYSA [Suspect]
     Active Substance: TUCATINIB
     Indication: Colon cancer
     Dosage: 200 MG, 2X/DAY
     Route: 048
     Dates: start: 20250404
  2. TUKYSA [Suspect]
     Active Substance: TUCATINIB
     Indication: Lung neoplasm malignant
     Dosage: TAKE 200 MG BY MOUTH TWICE DAILY
     Route: 048
     Dates: start: 20250404
  3. FOLIC ACID [Concomitant]
     Active Substance: FOLIC ACID
  4. MIDODRINE HYDROCHLORIDE [Concomitant]
     Active Substance: MIDODRINE HYDROCHLORIDE
  5. VITAMIN B12 [Concomitant]
     Active Substance: CYANOCOBALAMIN
  6. NYSTATIN [Concomitant]
     Active Substance: NYSTATIN
  7. ZINC SULFATE [Concomitant]
     Active Substance: ZINC SULFATE
  8. VITAMIN D3 [Concomitant]
     Active Substance: CHOLECALCIFEROL
  9. FUROSEMIDE [Concomitant]
     Active Substance: FUROSEMIDE
  10. MIDODRINE [Concomitant]
     Active Substance: MIDODRINE
  11. ZINC [Concomitant]
     Active Substance: ZINC

REACTIONS (10)
  - Choking [Recovering/Resolving]
  - Nausea [Recovering/Resolving]
  - Retching [Recovering/Resolving]
  - Decreased appetite [Unknown]
  - Chromaturia [Unknown]
  - Fluid intake reduced [Unknown]
  - Abdominal distension [Unknown]
  - Weight increased [Unknown]
  - Rash [Recovering/Resolving]
  - Jaundice [Unknown]

NARRATIVE: CASE EVENT DATE: 20250425
